FAERS Safety Report 10203307 (Version 1)
Quarter: 2014Q2

REPORT INFORMATION
  Report Type: Spontaneous
  Country: US (occurrence: US)
  Receive Date: 20140529
  Receipt Date: 20140529
  Transmission Date: 20141212
  Serious: Yes (Other)
  Sender: FDA-Public Use
  Company Number: US-RB-066187-14

PATIENT
  Age: 79 Year
  Sex: Female

DRUGS (3)
  1. MUCINEX MAXIMUM STRENGTH [Suspect]
     Indication: PRODUCT USED FOR UNKNOWN INDICATION
     Dosage: LART TOOK ON 21-MAY-2014
     Route: 048
     Dates: start: 20140520
  2. CLORISIDIN HDT [Suspect]
     Indication: PRODUCT USED FOR UNKNOWN INDICATION
  3. Z-PACK [Suspect]
     Indication: PRODUCT USED FOR UNKNOWN INDICATION

REACTIONS (1)
  - Haemoptysis [Not Recovered/Not Resolved]
